FAERS Safety Report 8009004-3 (Version None)
Quarter: 2011Q4

REPORT INFORMATION
  Report Type: 
  Country: None (occurrence: None)
  Receive Date: 20111227
  Receipt Date: 20111222
  Transmission Date: 20120403
  Serious: No
  Sender: FDA-Public Use
  Company Number: US-PFIZER INC-2011312664

PATIENT
  Sex: Female
  Weight: 61.224 kg

DRUGS (1)
  1. CELEBREX [Suspect]
     Indication: TENDONITIS
     Dosage: DAILY
     Dates: start: 20110101, end: 20111218

REACTIONS (2)
  - PAIN IN EXTREMITY [None]
  - PAIN [None]
